FAERS Safety Report 24571133 (Version 1)
Quarter: 2024Q4

REPORT INFORMATION
  Report Type: Spontaneous
  Country: US (occurrence: US)
  Receive Date: 20241101
  Receipt Date: 20241101
  Transmission Date: 20250115
  Serious: No
  Sender: HALEON
  Company Number: US-HALEON-2204483

PATIENT
  Sex: Female

DRUGS (3)
  1. SENSODYNE CLINICAL WHITE STAIN PROTECTOR [Suspect]
     Active Substance: POTASSIUM NITRATE\SODIUM FLUORIDE
     Indication: Tooth whitening
  2. SENSODYNE CLINICAL WHITE STAIN PROTECTOR [Suspect]
     Active Substance: POTASSIUM NITRATE\SODIUM FLUORIDE
     Indication: Hyperaesthesia teeth
  3. SENSODYNE PRONAMEL GENTLE WHITENING [Suspect]
     Active Substance: POTASSIUM NITRATE\SODIUM FLUORIDE
     Indication: Tooth whitening

REACTIONS (3)
  - Lip exfoliation [Unknown]
  - Drug ineffective [Unknown]
  - Therapeutic response unexpected [Unknown]
